FAERS Safety Report 14526164 (Version 1)
Quarter: 2018Q1

REPORT INFORMATION
  Report Type: Spontaneous
  Country: US (occurrence: US)
  Receive Date: 20180212
  Receipt Date: 20180212
  Transmission Date: 20180509
  Serious: No
  Sender: FDA-Public Use
  Company Number: None

PATIENT
  Age: 68 Year
  Sex: Female

DRUGS (1)
  1. H.P. ACTHAR [Suspect]
     Active Substance: CORTICOTROPIN
     Route: 030

REACTIONS (4)
  - Dyspnoea [None]
  - Pharyngeal oedema [None]
  - Pulmonary congestion [None]
  - Eye disorder [None]

NARRATIVE: CASE EVENT DATE: 20171210
